FAERS Safety Report 5087165-6 (Version None)
Quarter: 2006Q3

REPORT INFORMATION
  Report Type: 
  Country: None (occurrence: None)
  Receive Date: 20060823
  Receipt Date: 20060814
  Transmission Date: 20061208
  Serious: Yes (Other)
  Sender: FDA-Public Use
  Company Number: GB-ALLERGAN-0603998US

PATIENT
  Age: 62 Year
  Sex: Female

DRUGS (1)
  1. DYSPORT [Suspect]
     Indication: FACIAL SPASM
     Dosage: UNK, SINGLE
     Route: 030
     Dates: start: 20060627, end: 20060627

REACTIONS (3)
  - CONJUNCTIVAL DISORDER [None]
  - EYE PAIN [None]
  - MUSCLE SPASMS [None]
